FAERS Safety Report 25184082 (Version 1)
Quarter: 2025Q2

REPORT INFORMATION
  Report Type: Spontaneous
  Country: ES (occurrence: ES)
  Receive Date: 20250410
  Receipt Date: 20250410
  Transmission Date: 20250716
  Serious: Yes (Other)
  Sender: DR REDDYS
  Company Number: ES-GERMAN-ESP/2025/04/005296

PATIENT
  Age: 38 Year
  Sex: Female

DRUGS (2)
  1. CYCLOPHOSPHAMIDE [Suspect]
     Active Substance: CYCLOPHOSPHAMIDE
     Indication: Systemic scleroderma
     Dates: start: 202111
  2. RITUXIMAB [Concomitant]
     Active Substance: RITUXIMAB
     Indication: Systemic scleroderma
     Dates: start: 202210

REACTIONS (1)
  - Drug ineffective for unapproved indication [Recovered/Resolved]
